FAERS Safety Report 6792096-7 (Version None)
Quarter: 2010Q2

REPORT INFORMATION
  Report Type: 
  Country: None (occurrence: None)
  Receive Date: 20100624
  Receipt Date: 20090618
  Transmission Date: 20101027
  Serious: Yes (Other)
  Sender: FDA-Public Use
  Company Number: US-PFIZER INC-2008059942

PATIENT
  Sex: Female
  Weight: 82 kg

DRUGS (10)
  1. PROVERA [Suspect]
     Indication: HORMONE REPLACEMENT THERAPY
     Dosage: 2.5 MG, UNK
     Route: 048
     Dates: start: 19890101, end: 19950101
  2. PREMARIN [Suspect]
     Indication: HORMONE REPLACEMENT THERAPY
     Dosage: 0.625 MG, UNK
     Dates: start: 19890101, end: 19950101
  3. COUMADIN [Concomitant]
     Indication: CARDIAC VALVE DISEASE
     Dosage: UNK
     Dates: start: 19730101, end: 20060101
  4. COUMADIN [Concomitant]
     Indication: ATRIAL FIBRILLATION
  5. DIGOXIN [Concomitant]
     Indication: CARDIAC FAILURE CONGESTIVE
     Dosage: UNK
     Dates: start: 19730101
  6. DIGOXIN [Concomitant]
     Indication: ATRIAL FIBRILLATION
  7. BETAPACE [Concomitant]
     Indication: CARDIAC FAILURE CONGESTIVE
     Dosage: UNK
     Dates: start: 19730101
  8. BETAPACE [Concomitant]
     Indication: ATRIAL FIBRILLATION
  9. LANOXIN [Concomitant]
     Indication: CARDIAC FAILURE CONGESTIVE
     Dosage: UNK
     Dates: start: 19730101
  10. ADALAT [Concomitant]
     Indication: PROPHYLAXIS
     Dosage: UNK
     Dates: start: 19730101

REACTIONS (1)
  - BREAST CANCER FEMALE [None]
